FAERS Safety Report 9372025 (Version 1)
Quarter: 2013Q2

REPORT INFORMATION
  Report Type: Spontaneous
  Country: US (occurrence: US)
  Receive Date: 20130627
  Receipt Date: 20130627
  Transmission Date: 20140414
  Serious: Yes (Other)
  Sender: FDA-Public Use
  Company Number: US-BAYER-2013-075777

PATIENT
  Age: 90 Year
  Sex: Female
  Weight: 58.96 kg

DRUGS (6)
  1. BAYER WOMEN^S LOW STRENGTH ASPIRIN REGIMEN [Suspect]
     Indication: ISCHAEMIC HEART DISEASE PROPHYLAXIS
     Dosage: 1 DF, QD
     Route: 048
     Dates: start: 201207, end: 201209
  2. NITROGLYCERIN [Concomitant]
  3. NITROGLYCERIN [Concomitant]
  4. OMEGA 3 [Concomitant]
  5. ZIAC [Concomitant]
  6. NEXIUM [Concomitant]

REACTIONS (4)
  - Blindness unilateral [None]
  - Visual impairment [None]
  - Colour blindness acquired [None]
  - Vision blurred [None]
